FAERS Safety Report 20156630 (Version 2)
Quarter: 2022Q1

REPORT INFORMATION
  Report Type: Spontaneous
  Country: US (occurrence: US)
  Receive Date: 20211207
  Receipt Date: 20220121
  Transmission Date: 20220423
  Serious: No
  Sender: FDA-Public Use
  Company Number: US-BAYER-2021A261259

PATIENT
  Age: 56 Year
  Sex: Female
  Weight: 81.8 kg

DRUGS (3)
  1. ADEMPAS [Suspect]
     Active Substance: RIOCIGUAT
     Indication: Product used for unknown indication
  2. OPSUMIT [Concomitant]
     Active Substance: MACITENTAN
     Indication: Pulmonary hypertension
     Dosage: 10 MG, QD
     Route: 048
  3. REMODULIN [Concomitant]
     Active Substance: TREPROSTINIL
     Indication: Product used for unknown indication

REACTIONS (8)
  - Feeling abnormal [None]
  - Dyspnoea [None]
  - Palpitations [None]
  - Injection site inflammation [None]
  - Application site reaction [None]
  - Frustration tolerance decreased [None]
  - Application site pain [None]
  - Device infusion issue [None]

NARRATIVE: CASE EVENT DATE: 20211101
